FAERS Safety Report 9457491 (Version 1)
Quarter: 2013Q3

REPORT INFORMATION
  Report Type: Spontaneous
  Country: US (occurrence: US)
  Receive Date: 20130814
  Receipt Date: 20130814
  Transmission Date: 20140515
  Serious: No
  Sender: FDA-Public Use
  Company Number: US-B.I. PHARMACEUTICALS,INC./RIDGEFIELD-2013-BI-23974BP

PATIENT
  Age: 58 Year
  Sex: Female
  Weight: 45 kg

DRUGS (16)
  1. SPIRIVA [Suspect]
     Indication: CHRONIC OBSTRUCTIVE PULMONARY DISEASE
     Dosage: 18 MCG
     Route: 055
     Dates: start: 201306
  2. THEOPHYLLINE [Concomitant]
     Indication: CHRONIC OBSTRUCTIVE PULMONARY DISEASE
     Dosage: 200 MG
     Route: 048
     Dates: start: 201306
  3. PROVENTIL [Concomitant]
     Indication: CHRONIC OBSTRUCTIVE PULMONARY DISEASE
     Dosage: 2 PUF
     Route: 055
     Dates: start: 2003
  4. SYMBICORT [Concomitant]
     Indication: CHRONIC OBSTRUCTIVE PULMONARY DISEASE
     Dosage: 2 PUF
     Route: 055
     Dates: start: 201306
  5. LIPITOR [Concomitant]
     Indication: BLOOD CHOLESTEROL INCREASED
     Dosage: 40 MG
     Route: 048
     Dates: start: 201306
  6. BACTRIM [Concomitant]
     Indication: PNEUMONIA
     Dosage: 500 MG
     Route: 048
     Dates: start: 201306
  7. METOPROLOL [Concomitant]
     Indication: HYPERTENSION
     Dosage: 50 MG
     Route: 048
     Dates: start: 201306
  8. METHYLPREDNISOLONE [Concomitant]
     Indication: PNEUMONIA
     Dosage: 10 MG
     Route: 048
     Dates: start: 201306
  9. LEVAQUIN [Concomitant]
     Indication: PNEUMONIA
     Dosage: 500 MG
     Route: 048
     Dates: start: 201306
  10. SINGULAIR [Concomitant]
     Indication: ASTHMA
     Dosage: 2 MG
     Route: 048
     Dates: start: 1993
  11. ZOVIRAX [Concomitant]
     Indication: PNEUMONIA
     Dosage: 1 ANZ
     Route: 048
     Dates: start: 201306
  12. ASPIRIN [Concomitant]
     Dosage: 325 MG
     Route: 048
     Dates: start: 201306
  13. CLARITIN [Concomitant]
     Indication: ASTHMA
     Dosage: 10 MG
     Route: 048
     Dates: start: 1993
  14. BENADRYL [Concomitant]
     Indication: SEASONAL ALLERGY
     Dosage: 25 MG
     Route: 048
     Dates: start: 1980
  15. BENADRYL [Concomitant]
     Indication: SEASONAL ALLERGY
  16. BENADRYL [Concomitant]
     Indication: ALLERGY TO PLANTS

REACTIONS (1)
  - Wheezing [Not Recovered/Not Resolved]
